FAERS Safety Report 9915426 (Version 2)
Quarter: 2014Q1

REPORT INFORMATION
  Report Type: Spontaneous
  Country: US (occurrence: US)
  Receive Date: 20140221
  Receipt Date: 20140226
  Transmission Date: 20141002
  Serious: No
  Sender: FDA-Public Use
  Company Number: US-BIOGENIDEC-2013BI072834

PATIENT
  Age: 45 Year
  Sex: Male

DRUGS (1)
  1. AVONEX [Suspect]
     Indication: MULTIPLE SCLEROSIS
     Route: 030
     Dates: start: 20071101

REACTIONS (15)
  - Migraine [Recovered/Resolved]
  - Stress [Not Recovered/Not Resolved]
  - Fear of injection [Not Recovered/Not Resolved]
  - Nervousness [Not Recovered/Not Resolved]
  - Gait disturbance [Not Recovered/Not Resolved]
  - Memory impairment [Not Recovered/Not Resolved]
  - Loss of consciousness [Recovered/Resolved]
  - Neuropathy peripheral [Not Recovered/Not Resolved]
  - Road traffic accident [Recovered/Resolved]
  - Asperger^s disorder [Not Recovered/Not Resolved]
  - Muscular weakness [Not Recovered/Not Resolved]
  - Fatigue [Recovered/Resolved]
  - Asthenia [Not Recovered/Not Resolved]
  - Malaise [Not Recovered/Not Resolved]
  - Hypersensitivity [Recovered/Resolved]
